FAERS Safety Report 20845571 (Version 4)
Quarter: 2024Q2

REPORT INFORMATION
  Report Type: Report from Study
  Country: DE (occurrence: DE)
  Receive Date: 20220518
  Receipt Date: 20240624
  Transmission Date: 20240715
  Serious: Yes (Death, Other)
  Sender: FDA-Public Use
  Company Number: DE-GE HEALTHCARE-2022CSU003075

PATIENT
  Age: 32 Year
  Sex: Female

DRUGS (7)
  1. OMNISCAN [Suspect]
     Active Substance: GADODIAMIDE
     Indication: Magnetic resonance imaging
     Dosage: UNK UNK, SINGLE
     Route: 042
  2. OMNISCAN [Suspect]
     Active Substance: GADODIAMIDE
     Indication: Arterial thrombosis
     Dosage: UNK UNK, SINGLE
     Route: 065
  3. OMNISCAN [Suspect]
     Active Substance: GADODIAMIDE
     Indication: Pulmonary embolism
     Dosage: UNK UNK, SINGLE
     Route: 065
  4. OMNISCAN [Suspect]
     Active Substance: GADODIAMIDE
     Dosage: UNK UNK, SINGLE
     Route: 065
  5. OMNISCAN [Suspect]
     Active Substance: GADODIAMIDE
     Dosage: UNK UNK, SINGLE
     Route: 065
  6. OMNISCAN [Suspect]
     Active Substance: GADODIAMIDE
     Dosage: UNK UNK, SINGLE
     Route: 065
  7. GADOBUTROL [Suspect]
     Active Substance: GADOBUTROL
     Indication: Magnetic resonance imaging
     Dosage: CUMULATIVE DOSE OF 16 ML (1MMOL/ML)
     Route: 042

REACTIONS (11)
  - Cardiac arrest [Fatal]
  - Myocardial fibrosis [Fatal]
  - Muscle fibrosis [Fatal]
  - Skin fibrosis [Fatal]
  - Arrhythmia [Fatal]
  - Extremity necrosis [Unknown]
  - Nephrogenic systemic fibrosis [Unknown]
  - Skin ulcer [Unknown]
  - Contrast media deposition [Unknown]
  - Contrast media deposition [Unknown]
  - Joint contracture [Unknown]
